FAERS Safety Report 13291774 (Version 3)
Quarter: 2018Q1

REPORT INFORMATION
  Report Type: Spontaneous
  Country: ES (occurrence: ES)
  Receive Date: 20170302
  Receipt Date: 20180222
  Transmission Date: 20180508
  Serious: Yes (Disabling)
  Sender: FDA-Public Use
  Company Number: ES-PFIZER INC-2017084117

PATIENT
  Age: 30 Year
  Sex: Female
  Weight: 56 kg

DRUGS (1)
  1. BESITRAN [Suspect]
     Active Substance: SERTRALINE HYDROCHLORIDE
     Indication: OBSESSIVE THOUGHTS
     Dosage: 200 MG, DAILY (DURING 5 YEARS)
     Route: 048
     Dates: start: 20070202, end: 20120403

REACTIONS (1)
  - Stress [Not Recovered/Not Resolved]

NARRATIVE: CASE EVENT DATE: 20150604
